FAERS Safety Report 11928364 (Version 2)
Quarter: 2016Q1

REPORT INFORMATION
  Report Type: Spontaneous
  Country: JP (occurrence: JP)
  Receive Date: 20160119
  Receipt Date: 20160126
  Transmission Date: 20160526
  Serious: Yes (Death, Hospitalization)
  Sender: FDA-Public Use
  Company Number: JP-PFIZER INC-2016018150

PATIENT
  Age: 81 Year
  Sex: Male
  Weight: 62 kg

DRUGS (9)
  1. TAKELDA [Concomitant]
     Active Substance: ASPIRIN\LANSOPRAZOLE
     Dosage: 1 DF, 1X/DAY
     Route: 048
  2. KENACORT A /00031902/ [Concomitant]
     Dosage: 0.5 40-MG/ML BOTTLE
  3. PROCANIN [Concomitant]
     Dosage: 0.5%, TWO 5-ML AMPULES FOR TRIGGER POINT INJECTIONINTO THE LOW BACK
  4. LIVALO [Concomitant]
     Active Substance: PITAVASTATIN CALCIUM
     Dosage: 1 DF, 1X/DAY
     Route: 048
  5. AVAPRO [Concomitant]
     Active Substance: IRBESARTAN
     Dosage: 100 MG, 1X/DAY
     Route: 048
  6. LYRICA [Suspect]
     Active Substance: PREGABALIN
     Indication: BACK PAIN
     Dosage: 25 MG, 2X/DAY
     Route: 048
     Dates: start: 20151113, end: 20151230
  7. PLETAAL [Concomitant]
     Active Substance: CILOSTAZOL
     Dosage: 1 DF, 2X/DAY
     Route: 048
  8. ARTIST [Concomitant]
     Active Substance: CARVEDILOL
     Dosage: 1 DF, 1X/DAY
     Route: 048
  9. CILNIDIPINE [Concomitant]
     Active Substance: CILNIDIPINE
     Dosage: 10 MG, 1X/DAY
     Route: 048

REACTIONS (4)
  - Condition aggravated [Fatal]
  - Multiple organ dysfunction syndrome [Fatal]
  - Disseminated intravascular coagulation [Fatal]
  - Interstitial lung disease [Fatal]

NARRATIVE: CASE EVENT DATE: 20151230
